FAERS Safety Report 12995944 (Version 1)
Quarter: 2016Q4

REPORT INFORMATION
  Report Type: Spontaneous
  Country: US (occurrence: US)
  Receive Date: 20161202
  Receipt Date: 20161202
  Transmission Date: 20170207
  Serious: No
  Sender: FDA-Public Use
  Company Number: US-ACTELION-A-US2016-146398

PATIENT
  Age: 57 Year
  Sex: Male

DRUGS (1)
  1. VALCHLOR [Suspect]
     Active Substance: MECHLORETHAMINE
     Indication: MYCOSIS FUNGOIDES
     Dosage: THIN FILM TO AFFECTED AREAS OF ARMS, LEGS AND TRUNK
     Route: 061
     Dates: start: 20161011

REACTIONS (2)
  - Application site pruritus [Unknown]
  - Application site reaction [Unknown]
